FAERS Safety Report 20790474 (Version 2)
Quarter: 2022Q2

REPORT INFORMATION
  Report Type: Spontaneous
  Country: AT (occurrence: AT)
  Receive Date: 20220505
  Receipt Date: 20220518
  Transmission Date: 20220721
  Serious: Yes (Other)
  Sender: FDA-Public Use
  Company Number: AT-TEVA-2022-AT-2033154

PATIENT
  Age: 19 Year
  Sex: Female

DRUGS (5)
  1. METHOTREXATE [Suspect]
     Active Substance: METHOTREXATE
     Indication: Osteosarcoma metastatic
     Dosage: RECEIVED HIGH-DOSE METHOTREXATE 12G/M2 ON WEEKS 4, 5, 9 AND 10 AS FIRST-LINE NEOADJUVANT THERAPY ...
     Route: 065
  2. CISPLATIN [Suspect]
     Active Substance: CISPLATIN
     Indication: Osteosarcoma metastatic
     Dosage: FIRST-LINE NEOADJUVANT THERAPY AS PER EURAMOS-1 PROTOCOL
     Route: 065
  3. DOXORUBICIN [Suspect]
     Active Substance: DOXORUBICIN
     Indication: Osteosarcoma metastatic
     Dosage: FIRST-LINE NEOADJUVANT THERAPY AS PER EURAMOS-1 PROTOCOL ON WEEKS 1 AND 6
     Route: 065
  4. IFOSFAMIDE [Concomitant]
     Active Substance: IFOSFAMIDE
     Indication: Osteosarcoma metastatic
     Dosage: RECEIVED 3G/M2 WITH DOXORUBICIN OVER 3 DAYS IN CYCLES AND AT DOSE OF 2800MG/M2 WITH ETOPOSIDE OVE...
     Route: 065
     Dates: end: 201410
  5. ETOPOSIDE [Concomitant]
     Active Substance: ETOPOSIDE
     Indication: Osteosarcoma metastatic
     Dosage: RECEIVED OVER 5 DAYS IN DESIGNATED IE CYCLES, ACCORDING TO THE EURAMOS-1 TRIAL.
     Route: 065
     Dates: end: 201410

REACTIONS (3)
  - Hepatic enzyme increased [Unknown]
  - Drug clearance decreased [Unknown]
  - Drug ineffective [Unknown]
